FAERS Safety Report 16735018 (Version 1)
Quarter: 2019Q4

REPORT INFORMATION
  Report Type: Spontaneous
  Country: US (occurrence: US)
  Receive Date: 20190822
  Receipt Date: 20190822
  Transmission Date: 20200122
  Serious: Yes (Disabling)
  Sender: FDA-Public Use
  Company Number: None

PATIENT
  Age: 83 Year
  Sex: Female
  Weight: 96.75 kg

DRUGS (16)
  1. OMEGA 3 [Concomitant]
     Active Substance: OMEGA-3 FATTY ACIDS
  2. CIPRO [Suspect]
     Active Substance: CIPROFLOXACIN HYDROCHLORIDE
     Indication: URINARY TRACT INFECTION
     Route: 048
     Dates: start: 19940601, end: 20170601
  3. ONE A DAY VITAMINS [Concomitant]
     Active Substance: VITAMINS
  4. PREDNISONE. [Concomitant]
     Active Substance: PREDNISONE
  5. COQ10 [Concomitant]
     Active Substance: UBIDECARENONE
  6. AMLODIPINE [Concomitant]
     Active Substance: AMLODIPINE BESYLATE
  7. METHOTREXATE. [Concomitant]
     Active Substance: METHOTREXATE
  8. METANX [Concomitant]
     Active Substance: LEVOMEFOLATE CALCIUM\METHYLCOBALAMIN\PYRIDOXAL PHOSPHATE ANHYDROUS
  9. CALCIUM PLUS MAGNESIUM [Concomitant]
  10. CITROZINE [Concomitant]
  11. LOSARTAN. [Concomitant]
     Active Substance: LOSARTAN
  12. KETOKONAZOLE [Concomitant]
     Active Substance: KETOCONAZOLE
  13. CPAP [Concomitant]
     Active Substance: DEVICE
  14. KELP [Concomitant]
     Active Substance: KELP
  15. METOPROLOL. [Concomitant]
     Active Substance: METOPROLOL
  16. VITAMIN D3 [Concomitant]
     Active Substance: CHOLECALCIFEROL

REACTIONS (17)
  - Pain in extremity [None]
  - Paraesthesia [None]
  - Muscle tightness [None]
  - Tendon disorder [None]
  - Hypoaesthesia [None]
  - Gait disturbance [None]
  - Nerve injury [None]
  - Joint swelling [None]
  - Neuropathy peripheral [None]
  - Balance disorder [None]
  - Fall [None]
  - Fatigue [None]
  - Musculoskeletal stiffness [None]
  - Insomnia [None]
  - Walking aid user [None]
  - Coordination abnormal [None]
  - Muscle disorder [None]
